FAERS Safety Report 12655161 (Version 4)
Quarter: 2016Q4

REPORT INFORMATION
  Report Type: Spontaneous
  Country: CA (occurrence: CA)
  Receive Date: 20160816
  Receipt Date: 20161103
  Transmission Date: 20170207
  Serious: Yes (Hospitalization, Other)
  Sender: FDA-Public Use
  Company Number: CA-VERTEX PHARMACEUTICALS-2016-002922

PATIENT
  Age: 44 Year
  Sex: Male
  Weight: 73 kg

DRUGS (25)
  1. AMIKACIN [Concomitant]
     Active Substance: AMIKACIN
  2. SYMBICORT [Concomitant]
     Active Substance: BUDESONIDE\FORMOTEROL FUMARATE DIHYDRATE
  3. IRON [Concomitant]
     Active Substance: IRON
  4. CALCIUM [Concomitant]
     Active Substance: CALCIUM
  5. ZOPICLONE [Concomitant]
     Active Substance: ZOPICLONE
     Dosage: TABLET
  6. URSODIOL. [Concomitant]
     Active Substance: URSODIOL
  7. CITALOPRAM [Concomitant]
     Active Substance: CITALOPRAM HYDROBROMIDE
  8. CREON [Concomitant]
     Active Substance: PANCRELIPASE AMYLASE\PANCRELIPASE LIPASE\PANCRELIPASE PROTEASE
  9. DIDROCAL [Concomitant]
     Active Substance: CALCIUM CARBONATE\ETIDRONATE DISODIUM
  10. IMIPENEM [Concomitant]
     Active Substance: IMIPENEM
  11. AZITHROMYCIN ANHYDROUS. [Concomitant]
     Active Substance: AZITHROMYCIN ANHYDROUS
  12. POSACONAZOLE [Concomitant]
     Active Substance: POSACONAZOLE
  13. MULTIVITAMINUM [Concomitant]
  14. METOCLOPRAMIDE. [Concomitant]
     Active Substance: METOCLOPRAMIDE
  15. ONDANSETRON [Concomitant]
     Active Substance: ONDANSETRON
  16. INSULIN [Concomitant]
     Active Substance: INSULIN NOS
  17. ORKAMBI [Suspect]
     Active Substance: IVACAFTOR\LUMACAFTOR
     Indication: CYSTIC FIBROSIS
     Dosage: 1 DF, QD
     Route: 048
     Dates: start: 20160426, end: 2016
  18. OMEPRAZOLE. [Concomitant]
     Active Substance: OMEPRAZOLE
  19. VITAMIN D [Concomitant]
     Active Substance: CHOLECALCIFEROL
  20. VENTOLIN [Concomitant]
     Active Substance: ALBUTEROL SULFATE
  21. TIOTROPIUM [Concomitant]
     Active Substance: TIOTROPIUM
  22. PREDNISONE. [Concomitant]
     Active Substance: PREDNISONE
  23. TIGECYCLINE. [Concomitant]
     Active Substance: TIGECYCLINE
  24. SPIRONOLACTONE. [Concomitant]
     Active Substance: SPIRONOLACTONE
     Indication: OEDEMA PERIPHERAL
  25. LASIX [Concomitant]
     Active Substance: FUROSEMIDE
     Indication: OEDEMA PERIPHERAL

REACTIONS (3)
  - Hypertensive emergency [Recovered/Resolved]
  - Headache [Recovered/Resolved]
  - Cystic fibrosis lung [Unknown]

NARRATIVE: CASE EVENT DATE: 20160427
